FAERS Safety Report 6640622-0 (Version None)
Quarter: 2010Q1

REPORT INFORMATION
  Report Type: 
  Country: None (occurrence: None)
  Receive Date: 20100318
  Receipt Date: 20100309
  Transmission Date: 20100710
  Serious: Yes (Hospitalization)
  Sender: FDA-Public Use
  Company Number: NL-BAXTER-2010BH005659

PATIENT
  Age: 63 Year
  Sex: Female
  Weight: 68 kg

DRUGS (1)
  1. GAMMAGARD LIQUID [Suspect]
     Indication: PRIMARY IMMUNODEFICIENCY SYNDROME
     Route: 065
     Dates: start: 20100101, end: 20100131

REACTIONS (5)
  - CONJUNCTIVITIS [None]
  - DIZZINESS [None]
  - EYE PRURITUS [None]
  - MALAISE [None]
  - PYREXIA [None]
